FAERS Safety Report 8383241-0 (Version None)
Quarter: 2012Q2

REPORT INFORMATION
  Report Type: 
  Country: None (occurrence: None)
  Receive Date: 20120524
  Receipt Date: 20120515
  Transmission Date: 20120825
  Serious: Yes (Hospitalization)
  Sender: FDA-Public Use
  Company Number: JP-VERTEX PHARMACEUTICALS INC.-AE-2012-007340

PATIENT
  Age: 67 Year
  Sex: Male

DRUGS (3)
  1. PEG-INTRON [Concomitant]
     Dates: start: 20120404
  2. TELAVIC (TELAPREVIR) [Suspect]
     Route: 048
     Dates: start: 20120404, end: 20120514
  3. REBETOL [Concomitant]
     Route: 048
     Dates: start: 20120404

REACTIONS (3)
  - MALAISE [None]
  - DIZZINESS [None]
  - VOMITING [None]
